FAERS Safety Report 19731889 (Version 2)
Quarter: 2021Q4

REPORT INFORMATION
  Report Type: Spontaneous
  Country: US (occurrence: US)
  Receive Date: 20210820
  Receipt Date: 20211222
  Transmission Date: 20220303
  Serious: Yes (Hospitalization, Other)
  Sender: FDA-Public Use
  Company Number: US-ELI_LILLY_AND_COMPANY-US202108004993

PATIENT
  Sex: Female
  Weight: 218 kg

DRUGS (4)
  1. BASAGLAR [Suspect]
     Active Substance: INSULIN GLARGINE
     Indication: Type 2 diabetes mellitus
     Dosage: UNK, UNKNOWN
     Route: 065
     Dates: start: 2018
  2. BASAGLAR [Suspect]
     Active Substance: INSULIN GLARGINE
     Indication: Hyperglycaemia
     Dosage: 40 U, QHS
     Route: 030
     Dates: start: 20200825
  3. HUMALOG [Suspect]
     Active Substance: INSULIN LISPRO
     Indication: Type 2 diabetes mellitus
     Dosage: 40 U, QHS
     Route: 030
  4. HUMALOG [Suspect]
     Active Substance: INSULIN LISPRO
     Indication: Hyperglycaemia

REACTIONS (9)
  - Intervertebral disc injury [Unknown]
  - Colon cancer [Recovered/Resolved]
  - Cerebrovascular accident [Unknown]
  - Carpal tunnel syndrome [Recovered/Resolved]
  - Back pain [Unknown]
  - Angiopathy [Unknown]
  - Peripheral vascular disorder [Unknown]
  - Obesity [Unknown]
  - Cerebrovascular accident [Recovered/Resolved]

NARRATIVE: CASE EVENT DATE: 20120101
